FAERS Safety Report 8189983-4 (Version None)
Quarter: 2012Q1

REPORT INFORMATION
  Report Type: 
  Country: None (occurrence: None)
  Receive Date: 20120307
  Receipt Date: 20120224
  Transmission Date: 20120608
  Serious: Yes (Hospitalization)
  Sender: FDA-Public Use
  Company Number: IE-MEDIMMUNE-MEDI-0015081

PATIENT
  Sex: Female

DRUGS (3)
  1. TRIMETHOPRIM [Concomitant]
  2. SYNAGIS [Suspect]
     Route: 030
     Dates: start: 20081003, end: 20081003
  3. MOVIPREP [Concomitant]

REACTIONS (1)
  - PNEUMOTHORAX [None]
